FAERS Safety Report 4783412-6 (Version None)
Quarter: 2005Q3

REPORT INFORMATION
  Report Type: 
  Country: None (occurrence: None)
  Receive Date: 20050928
  Receipt Date: 20050912
  Transmission Date: 20060218
  Serious: No
  Sender: FDA-Public Use
  Company Number: US_0504116446

PATIENT
  Age: 49 Year
  Sex: Female
  Weight: 106 kg

DRUGS (8)
  1. ZYPREXA [Suspect]
     Indication: BIPOLAR DISORDER
     Dosage: 10 MG DAY
     Dates: start: 20010802
  2. LITHIUM CARBONATE [Concomitant]
  3. IBUPROFEN [Concomitant]
  4. ALPRAZOLAM [Concomitant]
  5. ZOLPIDEM TARTRATE [Concomitant]
  6. NEFAZODONE HCL [Concomitant]
  7. SUMATRIPTAN SUCCINATE [Concomitant]
  8. GUIAFENESIN W/PSEUDOEPHEDRINE [Concomitant]

REACTIONS (14)
  - COUGH [None]
  - DIABETES MELLITUS NON-INSULIN-DEPENDENT [None]
  - DRUG INEFFECTIVE [None]
  - DYSPNOEA [None]
  - EOSINOPHIL COUNT INCREASED [None]
  - INCREASED UPPER AIRWAY SECRETION [None]
  - LEUKOCYTOSIS [None]
  - LYMPHOCYTE MORPHOLOGY ABNORMAL [None]
  - LYMPHOCYTE PERCENTAGE DECREASED [None]
  - NEUTROPHIL COUNT INCREASED [None]
  - OBSTRUCTIVE AIRWAYS DISORDER [None]
  - RHINORRHOEA [None]
  - THROMBOCYTHAEMIA [None]
  - WEIGHT FLUCTUATION [None]
